FAERS Safety Report 6220549-9 (Version None)
Quarter: 2009Q2

REPORT INFORMATION
  Report Type: 
  Country: None (occurrence: None)
  Receive Date: 20090604
  Receipt Date: 20090526
  Transmission Date: 20091009
  Serious: Yes (Other)
  Sender: FDA-Public Use
  Company Number: US-WYE-H09477509

PATIENT
  Age: 42 Year
  Sex: Female
  Weight: 72.64 kg

DRUGS (4)
  1. PREMPRO [Suspect]
     Indication: HOT FLUSH
     Dosage: ORAL
     Route: 048
     Dates: start: 20090417, end: 20090514
  2. PREMPRO [Suspect]
     Indication: NIGHT SWEATS
     Dosage: ORAL
     Route: 048
     Dates: start: 20090417, end: 20090514
  3. PREMPRO [Suspect]
     Indication: HOT FLUSH
     Dosage: ORAL
     Route: 048
     Dates: start: 20090517, end: 20090523
  4. PREMPRO [Suspect]
     Indication: NIGHT SWEATS
     Dosage: ORAL
     Route: 048
     Dates: start: 20090517, end: 20090523

REACTIONS (1)
  - TRANSIENT ISCHAEMIC ATTACK [None]
